FAERS Safety Report 4328796-8 (Version None)
Quarter: 2004Q1

REPORT INFORMATION
  Report Type: 
  Country: None (occurrence: None)
  Receive Date: 20040329
  Receipt Date: 20040112
  Transmission Date: 20041129
  Serious: No
  Sender: FDA-Public Use
  Company Number: 04P-163-0247018-00

PATIENT
  Age: 61 Year
  Sex: Female

DRUGS (7)
  1. HUMIRA [Suspect]
     Indication: CROHN'S DISEASE
     Dosage: 40 MG, 1 IN 2 WK, PER ORAL
     Route: 048
     Dates: start: 20040111
  2. HUMIRA [Suspect]
     Indication: PSORIATIC ARTHROPATHY
     Dosage: 40 MG, 1 IN 2 WK, PER ORAL
     Route: 048
     Dates: start: 20040111
  3. LEVOTHYROXINE SODIUM [Concomitant]
  4. CONJUGATED ESTROGEN [Concomitant]
  5. MESALAZINE [Concomitant]
  6. FEXOFENADINE HYDROCHLORIDE [Concomitant]
  7. DICYCLOMINE HCL [Concomitant]

REACTIONS (1)
  - INJECTION SITE BURNING [None]
